FAERS Safety Report 23579601 (Version 1)
Quarter: 2024Q1

REPORT INFORMATION
  Report Type: Spontaneous
  Country: MX (occurrence: MX)
  Receive Date: 20240229
  Receipt Date: 20240229
  Transmission Date: 20240409
  Serious: Yes (Other)
  Sender: FDA-Public Use
  Company Number: MX-JNJFOC-20240212687

PATIENT
  Age: 21 Year
  Sex: Female

DRUGS (7)
  1. SIMPONI [Suspect]
     Active Substance: GOLIMUMAB
     Indication: Ankylosing spondylitis
     Route: 058
  2. ACETAMINOPHEN\TRAMADOL [Concomitant]
     Active Substance: ACETAMINOPHEN\TRAMADOL
     Indication: Fibromyalgia
     Route: 048
     Dates: start: 202306
  3. DULPICAP [Concomitant]
     Indication: Fibromyalgia
     Route: 048
     Dates: start: 202307
  4. METICORTEN [Concomitant]
     Active Substance: PREDNISONE
     Indication: Spondylitis
     Route: 048
     Dates: start: 202307
  5. PREGABALIN [Concomitant]
     Active Substance: PREGABALIN
     Indication: Fibromyalgia
     Route: 048
     Dates: start: 202307
  6. METHOTREXATE [Concomitant]
     Active Substance: METHOTREXATE
     Indication: Spondylitis
     Route: 048
     Dates: start: 202311
  7. FOLIC ACID [Concomitant]
     Active Substance: FOLIC ACID
     Indication: Spondylitis
     Route: 048
     Dates: start: 202311

REACTIONS (3)
  - Dermatosis [Recovered/Resolved]
  - Dysmenorrhoea [Unknown]
  - Rash [Unknown]

NARRATIVE: CASE EVENT DATE: 20240127
